FAERS Safety Report 10043622 (Version 2)
Quarter: 2014Q2

REPORT INFORMATION
  Report Type: Report from Study
  Country: CA (occurrence: CA)
  Receive Date: 20140328
  Receipt Date: 20140404
  Transmission Date: 20141212
  Serious: Yes (Hospitalization)
  Sender: FDA-Public Use
  Company Number: CA-JNJFOC-20140314857

PATIENT
  Age: 43 Year
  Sex: Female
  Weight: 84.1 kg

DRUGS (7)
  1. REMICADE [Suspect]
     Indication: COLITIS ULCERATIVE
     Route: 042
     Dates: start: 20140327
  2. REMICADE [Suspect]
     Indication: COLITIS ULCERATIVE
     Route: 042
     Dates: start: 20111130
  3. CELEBREX [Concomitant]
     Route: 048
  4. MULTIVITAMINES [Concomitant]
     Route: 048
  5. SYNTHROID [Concomitant]
     Route: 048
  6. SYNTHROID [Concomitant]
     Route: 048
  7. ATIVAN [Concomitant]
     Route: 065

REACTIONS (3)
  - Arthritis [Not Recovered/Not Resolved]
  - Infusion related reaction [Not Recovered/Not Resolved]
  - Eyelid oedema [Not Recovered/Not Resolved]
